FAERS Safety Report 6331765-X (Version None)
Quarter: 2009Q3

REPORT INFORMATION
  Report Type: 
  Country: None (occurrence: None)
  Receive Date: 20090826
  Receipt Date: 20090814
  Transmission Date: 20100115
  Serious: Yes (Other)
  Sender: FDA-Public Use
  Company Number: 239128K09USA

PATIENT
  Age: 63 Year
  Sex: Female
  Weight: 82 kg

DRUGS (9)
  1. REBIF [Suspect]
     Indication: MULTIPLE SCLEROSIS
     Dosage: 44 MCG, 3 IN 1 WEEKS, SUBCUTANEOUS
     Route: 058
     Dates: start: 20040512
  2. CYMBALTA [Concomitant]
  3. PROVIGIL [Concomitant]
  4. ALPRAZOLAM [Concomitant]
  5. CALCIUM (CALCIUM-SANDOZ /00009901/) [Concomitant]
  6. BONIVA [Concomitant]
  7. LEVOXYL [Concomitant]
  8. TRICOR [Concomitant]
  9. LIPITOR [Concomitant]

REACTIONS (3)
  - FALL [None]
  - HYDROCEPHALUS [None]
  - TYPE 2 DIABETES MELLITUS [None]
